FAERS Safety Report 9365617 (Version 1)
Quarter: 2013Q2

REPORT INFORMATION
  Report Type: Spontaneous
  Country: US (occurrence: US)
  Receive Date: 20130625
  Receipt Date: 20130625
  Transmission Date: 20140414
  Serious: No
  Sender: FDA-Public Use
  Company Number: US-009507513-1306USA008651

PATIENT
  Age: 29 Year
  Sex: Female
  Weight: 68.27 kg

DRUGS (2)
  1. NUVARING [Suspect]
     Indication: CONTRACEPTION
     Dosage: 3 WEEKS IN 1 WEEK OUT
     Route: 067
     Dates: start: 201203, end: 20130605
  2. NUVARING [Suspect]
     Dosage: 3 WEEKS IN 1 WEEK OUT
     Route: 067
     Dates: start: 20130605

REACTIONS (2)
  - Metrorrhagia [Recovered/Resolved]
  - Incorrect drug administration duration [Unknown]
